FAERS Safety Report 12376161 (Version 1)
Quarter: 2016Q2

REPORT INFORMATION
  Report Type: Spontaneous
  Country: US (occurrence: US)
  Receive Date: 20160517
  Receipt Date: 20160517
  Transmission Date: 20160815
  Serious: Yes (Hospitalization)
  Sender: FDA-Public Use
  Company Number: US-JNJFOC-20160512211

PATIENT
  Sex: Male

DRUGS (6)
  1. XARELTO [Suspect]
     Active Substance: RIVAROXABAN
     Indication: ATRIAL FIBRILLATION
     Route: 065
  2. LISINOPRIL. [Suspect]
     Active Substance: LISINOPRIL
     Indication: PRODUCT USED FOR UNKNOWN INDICATION
     Route: 065
  3. IBUPROFEN. [Suspect]
     Active Substance: IBUPROFEN
     Route: 065
  4. PLAVIX [Suspect]
     Active Substance: CLOPIDOGREL BISULFATE
     Indication: PRODUCT USED FOR UNKNOWN INDICATION
     Route: 065
  5. IBUPROFEN. [Suspect]
     Active Substance: IBUPROFEN
     Indication: ARTHRITIS
     Dosage: LAST YEAR ON A DAILY BASIS, SOMETIMES MORE THAN 4 PILLS A DAY
     Route: 065
  6. PLETAL [Suspect]
     Active Substance: CILOSTAZOL
     Indication: PRODUCT USED FOR UNKNOWN INDICATION
     Route: 065

REACTIONS (14)
  - Acute kidney injury [Unknown]
  - Atrial fibrillation [Unknown]
  - Atrial flutter [Unknown]
  - Renal artery stenosis [Unknown]
  - Acute prerenal failure [Unknown]
  - Hyponatraemia [Unknown]
  - Upper gastrointestinal haemorrhage [Unknown]
  - Cardiac failure congestive [Unknown]
  - Dyslipidaemia [Unknown]
  - Anaemia [Unknown]
  - Cardiac stress test abnormal [Unknown]
  - Obstructive nephropathy [Unknown]
  - Hypertension [Unknown]
  - Prostatomegaly [Unknown]
